FAERS Safety Report 5411056-1 (Version None)
Quarter: 2007Q3

REPORT INFORMATION
  Report Type: 
  Country: None (occurrence: None)
  Receive Date: 20070810
  Receipt Date: 20070730
  Transmission Date: 20080115
  Serious: Yes (Other)
  Sender: FDA-Public Use
  Company Number: US-JNJFOC-20070800063

PATIENT
  Age: 52 Year
  Sex: Female
  Weight: 70.31 kg

DRUGS (2)
  1. ELMIRON [Suspect]
     Indication: CYSTITIS INTERSTITIAL
     Route: 048
  2. LEVAQUIN [Suspect]
     Indication: DRUG USE FOR UNKNOWN INDICATION
     Route: 065

REACTIONS (6)
  - DEPRESSION [None]
  - DIZZINESS [None]
  - DYSPNOEA [None]
  - GINGIVAL BLEEDING [None]
  - HYPERSENSITIVITY [None]
  - HYPOTENSION [None]
